FAERS Safety Report 9526292 (Version 2)
Quarter: 2014Q2

REPORT INFORMATION
  Report Type: Spontaneous
  Country: US (occurrence: US)
  Receive Date: 20130916
  Receipt Date: 20140423
  Transmission Date: 20141212
  Serious: Yes (Hospitalization, Other)
  Sender: FDA-Public Use
  Company Number: US-PFIZER INC-2013263739

PATIENT
  Age: 55 Year
  Sex: Male

DRUGS (3)
  1. CHANTIX [Suspect]
     Indication: SMOKING CESSATION THERAPY
     Dosage: 0.5 MG, DAILY FOR ONE TO THREE DAYS
     Route: 048
     Dates: start: 20110604, end: 201106
  2. CHANTIX [Suspect]
     Dosage: 0.5 MG, 2X/DAY (NEXT 4-7 DAYS)
     Route: 048
     Dates: start: 201106, end: 201106
  3. CHANTIX [Suspect]
     Dosage: 1 MG, 2X/DAY
     Route: 048
     Dates: start: 201106, end: 20110614

REACTIONS (6)
  - Haematochezia [Unknown]
  - Loss of consciousness [Unknown]
  - Myocardial infarction [Unknown]
  - Cardiac arrest [Unknown]
  - Ventricular fibrillation [Unknown]
  - Fall [Unknown]
